FAERS Safety Report 17785703 (Version 1)
Quarter: 2020Q2

REPORT INFORMATION
  Report Type: Spontaneous
  Country: US (occurrence: US)
  Receive Date: 20200514
  Receipt Date: 20200514
  Transmission Date: 20200714
  Serious: No
  Sender: FDA-Public Use
  Company Number: US-VERTEX PHARMACEUTICALS-2020-010424

PATIENT
  Age: 29 Year
  Sex: Female

DRUGS (2)
  1. DOXYCYCLINE. [Concomitant]
     Active Substance: DOXYCYCLINE
     Dosage: FOUR WEEK REGIMEN
     Dates: start: 20200318
  2. TRIKAFTA [Suspect]
     Active Substance: ELEXACAFTOR\IVACAFTOR\TEZACAFTOR
     Indication: CYSTIC FIBROSIS
     Dosage: UNK
     Route: 048
     Dates: start: 20191123

REACTIONS (2)
  - Muscle contractions involuntary [Unknown]
  - Sunburn [Unknown]

NARRATIVE: CASE EVENT DATE: 20200502
